FAERS Safety Report 19716147 (Version 2)
Quarter: 2022Q3

REPORT INFORMATION
  Report Type: Spontaneous
  Country: US (occurrence: US)
  Receive Date: 20210818
  Receipt Date: 20220922
  Transmission Date: 20221027
  Serious: No
  Sender: FDA-Public Use
  Company Number: US-PFIZER INC-2021593138

PATIENT
  Age: 50 Year
  Sex: Female

DRUGS (9)
  1. IBRANCE [Suspect]
     Active Substance: PALBOCICLIB
     Indication: Breast cancer female
     Dosage: 75 MG, CYCLIC (TAKE 1 TABLET BY MOUTH ONCE A DAY FOR 21 DAYS ON, 7 DAYS OFF. THEN REPEAT)
     Route: 048
     Dates: start: 20191012
  2. IBRANCE [Suspect]
     Active Substance: PALBOCICLIB
     Dosage: 100 MG, CYCLIC (DAILY FOR 21 DAYS)
     Dates: start: 20210115
  3. IBRANCE [Suspect]
     Active Substance: PALBOCICLIB
     Dosage: 75 MG, CYCLIC (21 DAYS ON, 7 DAYS OFF. THEN REPEAT)
     Route: 048
     Dates: start: 20211012
  4. FENTANYL [Concomitant]
     Active Substance: FENTANYL
     Dosage: UNK (50 MCG/HR)
  5. LETROZOLE [Concomitant]
     Active Substance: LETROZOLE
     Dosage: UNK
  6. MORPHINE SULFATE [Concomitant]
     Active Substance: MORPHINE SULFATE
     Dosage: UNK
  7. NEXIUM [Concomitant]
     Active Substance: ESOMEPRAZOLE MAGNESIUM
     Dosage: UNK
  8. SENNA-S [DOCUSATE SODIUM;SENNA ALEXANDRINA] [Concomitant]
     Dosage: UNK (8.6-50MG)
  9. ZOLEDRONIC ACID [Concomitant]
     Active Substance: ZOLEDRONIC ACID
     Dosage: UNK (4MG/5ML SDV)

REACTIONS (2)
  - Full blood count abnormal [Not Recovered/Not Resolved]
  - COVID-19 [Not Recovered/Not Resolved]

NARRATIVE: CASE EVENT DATE: 20210401
